FAERS Safety Report 24327592 (Version 1)
Quarter: 2024Q3

REPORT INFORMATION
  Report Type: Spontaneous
  Country: US (occurrence: None)
  Receive Date: 20240916
  Receipt Date: 20240916
  Transmission Date: 20241017
  Serious: Yes (Death)
  Sender: Public
  Company Number: None

PATIENT
  Age: 69 Year
  Sex: Male
  Weight: 77.1 kg

DRUGS (2)
  1. ANDEXANET ALFA [Suspect]
     Active Substance: ANDEXANET ALFA
     Indication: Subdural haematoma
     Dosage: 1280 MG BOLUS + INFUSION INTRAVENOUS
     Route: 042
     Dates: start: 20240907, end: 20240908
  2. ELIQUIS [Suspect]
     Active Substance: APIXABAN

REACTIONS (5)
  - Cardiac arrest [None]
  - Subdural haematoma [None]
  - Electrocardiogram ST segment elevation [None]
  - Troponin increased [None]
  - Mental status changes [None]

NARRATIVE: CASE EVENT DATE: 20240907
